FAERS Safety Report 20855086 (Version 17)
Quarter: 2023Q4

REPORT INFORMATION
  Report Type: Spontaneous
  Country: US (occurrence: US)
  Receive Date: 20220520
  Receipt Date: 20231205
  Transmission Date: 20240109
  Serious: No
  Sender: FDA-Public Use
  Company Number: US-PFIZER INC-202200727224

PATIENT
  Age: 73 Year
  Sex: Female

DRUGS (6)
  1. IBRANCE [Suspect]
     Active Substance: PALBOCICLIB
     Indication: Breast cancer female
     Dosage: 125 MG
  2. IBRANCE [Suspect]
     Active Substance: PALBOCICLIB
     Dosage: 100 MG
  3. IBRANCE [Suspect]
     Active Substance: PALBOCICLIB
     Dosage: 75 MG
  4. IBRANCE [Suspect]
     Active Substance: PALBOCICLIB
     Dosage: ONE DAILY DAYS 1-21
     Route: 048
  5. IBRANCE [Suspect]
     Active Substance: PALBOCICLIB
     Dosage: 125 MG
     Dates: start: 20230808
  6. IBRANCE [Suspect]
     Active Substance: PALBOCICLIB
     Dosage: 100 MG
     Dates: start: 20231011

REACTIONS (9)
  - Neoplasm progression [Unknown]
  - Neoplasm recurrence [Unknown]
  - Malaise [Unknown]
  - Hypotension [Unknown]
  - Dizziness postural [Unknown]
  - Illness [Unknown]
  - Alopecia [Not Recovered/Not Resolved]
  - Back pain [Unknown]
  - Fatigue [Unknown]

NARRATIVE: CASE EVENT DATE: 20220621
